FAERS Safety Report 11704156 (Version 1)
Quarter: 2015Q4

REPORT INFORMATION
  Report Type: Report from Study
  Country: BR (occurrence: BR)
  Receive Date: 20151106
  Receipt Date: 20151106
  Transmission Date: 20160304
  Serious: Yes (Other)
  Sender: FDA-Public Use
  Company Number: PHHY2015BR143624

PATIENT
  Sex: Male
  Weight: 68 kg

DRUGS (3)
  1. EXELON PATCH [Suspect]
     Active Substance: RIVASTIGMINE
     Indication: DEMENTIA ALZHEIMER^S TYPE
  2. TRILEPTAL [Suspect]
     Active Substance: OXCARBAZEPINE
     Indication: PRODUCT USED FOR UNKNOWN INDICATION
     Route: 065
  3. EXELON PATCH [Suspect]
     Active Substance: RIVASTIGMINE
     Indication: PARKINSON^S DISEASE
     Dosage: PATCH 10 (CM2)
     Route: 062

REACTIONS (5)
  - Application site erythema [Recovering/Resolving]
  - Dementia with Lewy bodies [Recovering/Resolving]
  - Application site pain [Recovering/Resolving]
  - Application site reaction [Recovering/Resolving]
  - Application site pruritus [Recovering/Resolving]
